FAERS Safety Report 4429948-9 (Version None)
Quarter: 2004Q3

REPORT INFORMATION
  Report Type: 
  Country: None (occurrence: None)
  Receive Date: 20040820
  Receipt Date: 20040610
  Transmission Date: 20050211
  Serious: Yes (Hospitalization, Other)
  Sender: FDA-Public Use
  Company Number: PHHO2004US08968

PATIENT
  Age: 72 Year
  Sex: Male

DRUGS (10)
  1. ALBUTEROL [Concomitant]
  2. FELODIPINE [Concomitant]
  3. SALMETEROL [Concomitant]
  4. GOSERELIN [Concomitant]
  5. SIMVASTATIN [Concomitant]
  6. TERAZOSIN HCL [Concomitant]
  7. FLUNISOLIDE [Concomitant]
  8. CALCIUM [Concomitant]
  9. VITAMIN D [Concomitant]
  10. ZOLEDRONIC ACID [Suspect]
     Dosage: 4 MG, Q3MO
     Route: 042
     Dates: start: 20040607, end: 20040607

REACTIONS (2)
  - DIZZINESS [None]
  - ORTHOSTATIC HYPOTENSION [None]
